FAERS Safety Report 14382880 (Version 1)
Quarter: 2018Q1

REPORT INFORMATION
  Report Type: Spontaneous
  Country: DE (occurrence: DE)
  Receive Date: 20180114
  Receipt Date: 20180114
  Transmission Date: 20180509
  Serious: Yes (Other)
  Sender: FDA-Public Use
  Company Number: DE-B.I. PHARMACEUTICALS,INC./RIDGEFIELD-2018-12-000075

PATIENT
  Age: 86 Year
  Sex: Female
  Weight: 82 kg

DRUGS (3)
  1. DABIGATRAN [Suspect]
     Active Substance: DABIGATRAN
     Indication: PRODUCT USED FOR UNKNOWN INDICATION
     Dosage: EINNAHME MIN. SEIT 2014 BIS 1.10.2017
     Route: 065
     Dates: end: 20171001
  2. JANUVIA [Concomitant]
     Active Substance: SITAGLIPTIN PHOSPHATE
     Indication: PRODUCT USED FOR UNKNOWN INDICATION
     Dosage: 1-0-0
     Route: 048
  3. ACETYLSALICYLIC ACID [Suspect]
     Active Substance: ASPIRIN
     Indication: PRODUCT USED FOR UNKNOWN INDICATION
     Dosage: AFTER DETAILED INVESTIGATION (SELF- AND THIRD-PARTY ANAMNESIS - EPICRISIS 2015 + 2016)
     Route: 048

REACTIONS (3)
  - Haematuria [Recovered/Resolved]
  - Blood glucose abnormal [Unknown]
  - Bladder tamponade [Recovered/Resolved]

NARRATIVE: CASE EVENT DATE: 20171001
